FAERS Safety Report 12992649 (Version 3)
Quarter: 2017Q4

REPORT INFORMATION
  Report Type: Report from Study
  Country: BR (occurrence: BR)
  Receive Date: 20161202
  Receipt Date: 20171101
  Transmission Date: 20180320
  Serious: Yes (Other)
  Sender: FDA-Public Use
  Company Number: BR-ROCHE-1852843

PATIENT
  Age: 22 Year
  Sex: Female
  Weight: 74 kg

DRUGS (6)
  1. XOLAIR [Suspect]
     Active Substance: OMALIZUMAB
     Route: 058
     Dates: start: 201609
  2. XOLAIR [Suspect]
     Active Substance: OMALIZUMAB
     Route: 058
  3. SERETIDE [Concomitant]
     Active Substance: FLUTICASONE PROPIONATE\SALMETEROL XINAFOATE
     Indication: PRODUCT USED FOR UNKNOWN INDICATION
     Route: 065
  4. SPIRIVA [Concomitant]
     Active Substance: TIOTROPIUM BROMIDE MONOHYDRATE
     Indication: PRODUCT USED FOR UNKNOWN INDICATION
     Dosage: UNK
     Route: 065
  5. XOLAIR [Suspect]
     Active Substance: OMALIZUMAB
     Indication: ASTHMA
     Route: 058
     Dates: start: 201404
  6. XOLAIR [Suspect]
     Active Substance: OMALIZUMAB
     Route: 058
     Dates: start: 20140828

REACTIONS (9)
  - Fatigue [Recovering/Resolving]
  - Asthma [Unknown]
  - Dyspnoea exertional [Not Recovered/Not Resolved]
  - Malaise [Unknown]
  - Sinusitis [Recovered/Resolved]
  - Noninfective bronchitis [Recovering/Resolving]
  - Dyspnoea [Recovering/Resolving]
  - Asthmatic crisis [Unknown]
  - Rebound effect [Unknown]

NARRATIVE: CASE EVENT DATE: 201607
